FAERS Safety Report 22671042 (Version 2)
Quarter: 2023Q4

REPORT INFORMATION
  Report Type: Spontaneous
  Country: US (occurrence: US)
  Receive Date: 20230705
  Receipt Date: 20231004
  Transmission Date: 20240109
  Serious: No
  Sender: FDA-Public Use
  Company Number: US-BRISTOL-MYERS SQUIBB COMPANY-2023-093820

PATIENT
  Age: 56 Year
  Sex: Male
  Weight: 106.59 kg

DRUGS (1)
  1. LENALIDOMIDE [Suspect]
     Active Substance: LENALIDOMIDE
     Indication: Plasma cell myeloma
     Dosage: FREQ: 1 CAPSULE DAILY FOR 21 DAYS ON, THEN 7 ?DAYS OFF.
     Route: 048
     Dates: start: 20220604

REACTIONS (3)
  - Bronchitis [Unknown]
  - Sinusitis [Recovered/Resolved]
  - Ear infection [Recovered/Resolved]

NARRATIVE: CASE EVENT DATE: 20230702
